FAERS Safety Report 7652481-8 (Version None)
Quarter: 2011Q3

REPORT INFORMATION
  Report Type: 
  Country: None (occurrence: None)
  Receive Date: 20110728
  Receipt Date: 20110713
  Transmission Date: 20111222
  Serious: Yes (Other)
  Sender: FDA-Public Use
  Company Number: AUR-APL-2011-04330

PATIENT
  Age: 62 Year
  Sex: Female

DRUGS (5)
  1. METFORMIN HCL [Suspect]
     Indication: PRODUCT USED FOR UNKNOWN INDICATION
  2. LANTUS [Suspect]
     Indication: TYPE 2 DIABETES MELLITUS
     Dates: start: 20100101
  3. GLUCOTROL [Suspect]
     Indication: PRODUCT USED FOR UNKNOWN INDICATION
  4. SOLOSTAR (INSULIN GLARGINE) [Suspect]
     Indication: TYPE 2 DIABETES MELLITUS
     Dates: start: 20100101
  5. JANUVIA [Suspect]
     Indication: PRODUCT USED FOR UNKNOWN INDICATION

REACTIONS (1)
  - DIABETES MELLITUS INADEQUATE CONTROL [None]
